FAERS Safety Report 10046896 (Version 1)
Quarter: 2014Q1

REPORT INFORMATION
  Report Type: Spontaneous
  Country: US (occurrence: None)
  Receive Date: 20140328
  Receipt Date: 20140328
  Transmission Date: 20141002
  Serious: Yes (Other)
  Sender: FDA-Public Use
  Company Number: None

PATIENT
  Age: 33 Year
  Sex: Female
  Weight: 74.84 kg

DRUGS (1)
  1. TOPIRAMATE [Suspect]
     Indication: MIGRAINE PROPHYLAXIS
     Dosage: 25 MG  BUILD UP TO 100MG  TAKEN BY MOUTH
     Route: 048
     Dates: start: 20140314, end: 20140323

REACTIONS (3)
  - Vision blurred [None]
  - Ocular hyperaemia [None]
  - Eye pain [None]
